FAERS Safety Report 14210706 (Version 1)
Quarter: 2017Q4

REPORT INFORMATION
  Report Type: Spontaneous
  Country: US (occurrence: US)
  Receive Date: 20171121
  Receipt Date: 20171121
  Transmission Date: 20180321
  Serious: Yes (Other)
  Sender: FDA-Public Use
  Company Number: US-JNJFOC-20171015339

PATIENT
  Age: 76 Year
  Sex: Male
  Weight: 87.54 kg

DRUGS (18)
  1. REMICADE [Suspect]
     Active Substance: INFLIXIMAB
     Indication: CROHN^S DISEASE
     Route: 042
     Dates: start: 20170905
  2. ISONIAZID. [Suspect]
     Active Substance: ISONIAZID
     Indication: MYCOBACTERIUM TUBERCULOSIS COMPLEX TEST POSITIVE
     Route: 048
     Dates: start: 20161013, end: 20170713
  3. REMICADE [Suspect]
     Active Substance: INFLIXIMAB
     Indication: CROHN^S DISEASE
     Route: 042
     Dates: end: 200711
  4. AMLODIPINE [Concomitant]
     Active Substance: AMLODIPINE BESYLATE
     Route: 065
  5. MONTELUKAST [Concomitant]
     Active Substance: MONTELUKAST SODIUM
     Route: 065
  6. PREDNISONE. [Concomitant]
     Active Substance: PREDNISONE
     Route: 065
  7. REMICADE [Suspect]
     Active Substance: INFLIXIMAB
     Indication: CROHN^S DISEASE
     Route: 042
     Dates: start: 20170725
  8. ACETAMINOPHEN. [Suspect]
     Active Substance: ACETAMINOPHEN
     Indication: PRODUCT USED FOR UNKNOWN INDICATION
     Route: 065
  9. METHOTREXATE. [Suspect]
     Active Substance: METHOTREXATE
     Indication: CROHN^S DISEASE
     Route: 048
     Dates: start: 20161023
  10. LISINOPRIL. [Concomitant]
     Active Substance: LISINOPRIL
     Route: 065
  11. ADVAIR HFA [Concomitant]
     Active Substance: FLUTICASONE PROPIONATE\SALMETEROL XINAFOATE
     Route: 065
  12. REMICADE [Suspect]
     Active Substance: INFLIXIMAB
     Indication: CROHN^S DISEASE
     Route: 042
     Dates: start: 200712
  13. VITAMIN B12 [Concomitant]
     Active Substance: CYANOCOBALAMIN
     Route: 065
  14. FOLIC ACID. [Concomitant]
     Active Substance: FOLIC ACID
     Route: 065
  15. OMEPRAZOLE. [Concomitant]
     Active Substance: OMEPRAZOLE
     Route: 065
  16. METHOTREXATE. [Suspect]
     Active Substance: METHOTREXATE
     Indication: CROHN^S DISEASE
     Route: 030
     Dates: start: 200711, end: 201610
  17. DIPHENHYDRAMINE. [Concomitant]
     Active Substance: DIPHENHYDRAMINE
     Route: 065
  18. ACETAMINOPHEN. [Suspect]
     Active Substance: ACETAMINOPHEN
     Route: 065

REACTIONS (8)
  - Off label use [Unknown]
  - Spinal compression fracture [Unknown]
  - Crohn^s disease [Unknown]
  - Liver function test abnormal [Not Recovered/Not Resolved]
  - Drug ineffective [Unknown]
  - Anastomotic stenosis [Unknown]
  - Product use issue [Unknown]
  - Anaemia [Unknown]

NARRATIVE: CASE EVENT DATE: 20171016
